FAERS Safety Report 17744747 (Version 1)
Quarter: 2020Q2

REPORT INFORMATION
  Report Type: Spontaneous
  Country: US (occurrence: US)
  Receive Date: 20200505
  Receipt Date: 20200505
  Transmission Date: 20200714
  Serious: Yes (Other)
  Sender: FDA-Public Use
  Company Number: US-PFIZER INC-2020176252

PATIENT
  Age: 77 Year
  Sex: Female
  Weight: 67.59 kg

DRUGS (1)
  1. RUXIENCE [Suspect]
     Active Substance: RITUXIMAB-PVVR
     Indication: CHRONIC LYMPHOCYTIC LEUKAEMIA
     Dosage: 619 MG, SINGLE (ONCE)
     Route: 042
     Dates: start: 20200429, end: 20200429

REACTIONS (3)
  - Nausea [Recovered/Resolved]
  - Hypotension [Recovered/Resolved]
  - Throat irritation [Recovered/Resolved]

NARRATIVE: CASE EVENT DATE: 20200429
